FAERS Safety Report 23198048 (Version 1)
Quarter: 2023Q4

REPORT INFORMATION
  Report Type: Spontaneous
  Country: SE (occurrence: SE)
  Receive Date: 20231117
  Receipt Date: 20231117
  Transmission Date: 20240110
  Serious: Yes (Hospitalization, Other)
  Sender: FDA-Public Use
  Company Number: None

PATIENT
  Age: 66 Year
  Sex: Male

DRUGS (2)
  1. NINLARO [Suspect]
     Active Substance: IXAZOMIB CITRATE
     Indication: Plasma cell myeloma
     Dosage: 2.3 MILLIGRAM, 1/WEEK
     Route: 048
     Dates: start: 20230824, end: 20231019
  2. DARZALEX [Concomitant]
     Active Substance: DARATUMUMAB
     Dosage: 1800 MILLIGRAM, MONTHLY
     Route: 058
     Dates: start: 20221206

REACTIONS (1)
  - Hepatitis B reactivation [Recovering/Resolving]

NARRATIVE: CASE EVENT DATE: 20231030
